FAERS Safety Report 16539598 (Version 3)
Quarter: 2020Q2

REPORT INFORMATION
  Report Type: Report from Study
  Country: JP (occurrence: JP)
  Receive Date: 20190708
  Receipt Date: 20200628
  Transmission Date: 20200713
  Serious: Yes (Other)
  Sender: FDA-Public Use
  Company Number: JP-GILEAD-2018-0352736

PATIENT
  Age: 37 Year
  Sex: Male

DRUGS (4)
  1. EMTRICITABINE/TENOFOVIR ALAFENAMIDE [Suspect]
     Active Substance: EMTRICITABINE\TENOFOVIR
     Indication: HIV INFECTION
     Dosage: 1 DOSAGE FORM, QD
     Route: 048
     Dates: start: 20170329
  2. SINGULAIR [Concomitant]
     Active Substance: MONTELUKAST SODIUM
     Dosage: UNK
     Dates: start: 20200315
  3. XYZAL [Concomitant]
     Active Substance: LEVOCETIRIZINE DIHYDROCHLORIDE
     Dosage: UNK
     Dates: start: 20200315
  4. TIVICAY [Suspect]
     Active Substance: DOLUTEGRAVIR SODIUM
     Indication: HIV INFECTION
     Dosage: 1 DOSAGE FORM, QD
     Route: 048
     Dates: start: 20170329

REACTIONS (9)
  - Enteritis infectious [Recovering/Resolving]
  - Blood creatinine increased [Recovered/Resolved]
  - Blood triglycerides increased [Recovered/Resolved]
  - Tinea pedis [Recovering/Resolving]
  - Beta 2 microglobulin urine increased [Recovered/Resolved]
  - Irritable bowel syndrome [Recovering/Resolving]
  - Sinusitis [Not Recovered/Not Resolved]
  - Impetigo [Recovering/Resolving]
  - Sinusitis [Recovering/Resolving]

NARRATIVE: CASE EVENT DATE: 20170501
